FAERS Safety Report 6263997-3 (Version None)
Quarter: 2009Q3

REPORT INFORMATION
  Report Type: 
  Country: None (occurrence: None)
  Receive Date: 20090701
  Receipt Date: 20090518
  Transmission Date: 20100115
  Serious: Yes (Other)
  Sender: FDA-Public Use
  Company Number: 188442USA

PATIENT

DRUGS (1)
  1. LAMOTRIGINE [Suspect]

REACTIONS (2)
  - CONVULSION [None]
  - DRUG INEFFECTIVE [None]
